FAERS Safety Report 4692184-5 (Version None)
Quarter: 2005Q2

REPORT INFORMATION
  Report Type: 
  Country: None (occurrence: None)
  Receive Date: 20050614
  Receipt Date: 20050531
  Transmission Date: 20051028
  Serious: Yes (Hospitalization)
  Sender: FDA-Public Use
  Company Number: MEDI-0003451

PATIENT
  Age: 58 Year
  Sex: Male

DRUGS (3)
  1. ETHYOL [Suspect]
     Indication: RADIOTHERAPY
     Dosage: INTRAVENOUS
     Route: 042
     Dates: end: 20050425
  2. RADIATION THERAPY [Concomitant]
  3. ONDANSETRON HYDROCHLORIDE [Concomitant]

REACTIONS (2)
  - EYE DISORDER [None]
  - STEVENS-JOHNSON SYNDROME [None]
